FAERS Safety Report 6564474-2 (Version None)
Quarter: 2010Q1

REPORT INFORMATION
  Report Type: 
  Country: None (occurrence: None)
  Receive Date: 20100201
  Receipt Date: 20100122
  Transmission Date: 20100710
  Serious: Yes (Hospitalization)
  Sender: FDA-Public Use
  Company Number: IT-ASTRAZENECA-2010SE03279

PATIENT
  Age: 8816 Day
  Sex: Female

DRUGS (3)
  1. FOSCAVIR [Suspect]
     Indication: EPSTEIN-BARR VIRAEMIA
     Route: 042
     Dates: start: 20090326, end: 20090329
  2. SANDIMMUNE [Concomitant]
     Indication: IMMUNOSUPPRESSION
     Route: 048
     Dates: start: 20090215, end: 20090409
  3. MABTHERA [Concomitant]
     Indication: EPSTEIN-BARR VIRUS INFECTION
     Dosage: 600 MG
     Route: 042
     Dates: start: 20090326, end: 20090326

REACTIONS (4)
  - HYPOMAGNESAEMIA [None]
  - MUSCLE CONTRACTIONS INVOLUNTARY [None]
  - TREMOR [None]
  - VERTIGO [None]
